FAERS Safety Report 12636222 (Version 1)
Quarter: 2016Q3

REPORT INFORMATION
  Report Type: Spontaneous
  Country: FR (occurrence: FR)
  Receive Date: 20160809
  Receipt Date: 20160809
  Transmission Date: 20161109
  Serious: Yes (Disabling)
  Sender: FDA-Public Use
  Company Number: FR-ASTRAZENECA-2016SE85297

PATIENT
  Age: 762 Month
  Sex: Male

DRUGS (14)
  1. SOLUPRED [Interacting]
     Active Substance: PREDNISOLONE
     Indication: CHRONIC OBSTRUCTIVE PULMONARY DISEASE
     Route: 048
     Dates: start: 201310
  2. ATROVENT [Concomitant]
     Active Substance: IPRATROPIUM BROMIDE
  3. LASILIX [Concomitant]
     Active Substance: FUROSEMIDE
  4. BUDESONIDE NEBULIZATION [Suspect]
     Active Substance: BUDESONIDE
     Indication: CHRONIC OBSTRUCTIVE PULMONARY DISEASE
     Route: 055
     Dates: start: 201505
  5. SYMBICORT [Interacting]
     Active Substance: BUDESONIDE\FORMOTEROL FUMARATE DIHYDRATE
     Indication: CHRONIC OBSTRUCTIVE PULMONARY DISEASE
     Dosage: 400/12 UG/DOSE, 1 DF, TWO TIMES A DAY
     Route: 055
     Dates: start: 201307
  6. INNOVAIR [Interacting]
     Active Substance: BECLOMETHASONE DIPROPIONATE\FORMOTEROL
     Indication: CHRONIC OBSTRUCTIVE PULMONARY DISEASE
     Dosage: 100/6 UG/DOSE, 3 DF TWO TIMES PER DAY
     Route: 055
     Dates: start: 201310, end: 201505
  7. VENTOLINE [Concomitant]
     Active Substance: ALBUTEROL
  8. SPIRONOLACTONE. [Concomitant]
     Active Substance: SPIRONOLACTONE
  9. HYDROCORTISONE. [Concomitant]
     Active Substance: HYDROCORTISONE
  10. IPRATROPIUM BROMIDE\FENOTEROL HYDROBROMIDE [Concomitant]
     Active Substance: FENOTEROL HYDROBROMIDE\IPRATROPIUM BROMIDE
  11. KARDEGIC [Concomitant]
     Active Substance: ASPIRIN LYSINE
  12. CELESTENE [Interacting]
     Active Substance: BETAMETHASONE
     Indication: CHRONIC OBSTRUCTIVE PULMONARY DISEASE
     Route: 048
     Dates: start: 2015
  13. DIFFU K [Concomitant]
     Active Substance: POTASSIUM CHLORIDE
  14. MODOPAR [Concomitant]
     Active Substance: BENSERAZIDE HYDROCHLORIDE\LEVODOPA

REACTIONS (12)
  - Spinal cord compression [Recovered/Resolved with Sequelae]
  - Post procedural pneumonia [Unknown]
  - Adrenal insufficiency [Not Recovered/Not Resolved]
  - Respiratory distress [Unknown]
  - Drug interaction [Recovered/Resolved with Sequelae]
  - Septic shock [Unknown]
  - Pneumonia haemophilus [Unknown]
  - Osteoporotic fracture [Recovered/Resolved with Sequelae]
  - Osteoporosis [Recovered/Resolved with Sequelae]
  - Enterobacter infection [Unknown]
  - Spinal compression fracture [Recovered/Resolved with Sequelae]
  - Pulmonary embolism [Unknown]

NARRATIVE: CASE EVENT DATE: 201607
